FAERS Safety Report 5915039-4 (Version None)
Quarter: 2008Q4

REPORT INFORMATION
  Report Type: 
  Country: None (occurrence: None)
  Receive Date: 20081010
  Receipt Date: 20081001
  Transmission Date: 20090506
  Serious: Yes (Hospitalization)
  Sender: FDA-Public Use
  Company Number: JP-JNJFOC-20080902554

PATIENT
  Sex: Female
  Weight: 46 kg

DRUGS (10)
  1. REMICADE [Suspect]
     Route: 042
  2. REMICADE [Suspect]
     Route: 042
  3. REMICADE [Suspect]
     Indication: RHEUMATOID ARTHRITIS
     Route: 042
  4. METHOTREXATE SODIUM [Suspect]
     Route: 048
  5. METHOTREXATE SODIUM [Suspect]
     Indication: RHEUMATOID ARTHRITIS
     Route: 048
  6. PREDNISOLONE [Suspect]
     Indication: DRUG USE FOR UNKNOWN INDICATION
     Route: 048
  7. LOXONIN [Concomitant]
     Route: 048
  8. MUCOSTA [Concomitant]
     Route: 048
  9. BONALON [Concomitant]
     Route: 048
  10. RABEPRAZOLE SODIUM [Concomitant]
     Route: 048

REACTIONS (1)
  - TUBERCULOUS PLEURISY [None]
